FAERS Safety Report 17189712 (Version 1)
Quarter: 2019Q4

REPORT INFORMATION
  Report Type: Report from Study
  Country: KR (occurrence: KR)
  Receive Date: 20191223
  Receipt Date: 20191223
  Transmission Date: 20200122
  Serious: Yes (Hospitalization)
  Sender: FDA-Public Use
  Company Number: KR-AMGEN-KORNI2019212013

PATIENT
  Age: 46 Year
  Sex: Female

DRUGS (15)
  1. CYCLOPHOSPHAMIDE. [Concomitant]
     Active Substance: CYCLOPHOSPHAMIDE
     Dosage: 975 MILLIGRAM, QD (SINGLE)
     Route: 065
     Dates: start: 20190827, end: 20190827
  2. DOCETAXEL. [Concomitant]
     Active Substance: DOCETAXEL
     Dosage: 120 MILLIGRAM, QD (SINGLE)
     Route: 065
     Dates: start: 20191029, end: 20191029
  3. PEGFILGRASTIM [Suspect]
     Active Substance: PEGFILGRASTIM
     Dosage: 6 MG 1
     Route: 058
     Dates: start: 20191120, end: 20191120
  4. CYCLOPHOSPHAMIDE. [Concomitant]
     Active Substance: CYCLOPHOSPHAMIDE
     Dosage: 965 MILLIGRAM, QD (SINGLE)
     Route: 065
     Dates: start: 20190917, end: 20190917
  5. PEGFILGRASTIM [Suspect]
     Active Substance: PEGFILGRASTIM
     Dosage: 6 MG 1
     Route: 058
     Dates: start: 20190918, end: 20190918
  6. PEGFILGRASTIM [Suspect]
     Active Substance: PEGFILGRASTIM
     Dosage: 6 MG 1
     Route: 058
     Dates: start: 20191030, end: 20191030
  7. PEGFILGRASTIM [Suspect]
     Active Substance: PEGFILGRASTIM
     Indication: BREAST CANCER
     Dosage: 6 MG 1
     Route: 058
     Dates: start: 20190807, end: 20190807
  8. DOCETAXEL. [Concomitant]
     Active Substance: DOCETAXEL
     Dosage: 120 MILLIGRAM, QD (SINGLE)
     Route: 065
     Dates: start: 20191120, end: 20191120
  9. CYCLOPHOSPHAMIDE. [Concomitant]
     Active Substance: CYCLOPHOSPHAMIDE
     Indication: BREAST CANCER
     Dosage: 955 MILLIGRAM, QD (SINGLE)
     Route: 065
     Dates: start: 20190806, end: 20190806
  10. DOXORUBICIN [Concomitant]
     Active Substance: DOXORUBICIN
     Indication: BREAST CANCER
     Dosage: 95.5 MILLIGRAM, QD (SINGLE)
     Route: 065
     Dates: start: 20190806, end: 20190806
  11. DOXORUBICIN [Concomitant]
     Active Substance: DOXORUBICIN
     Dosage: 97.5 MILLIGRAM, QD (SINGLE)
     Route: 065
     Dates: start: 20190827, end: 20190827
  12. PEGFILGRASTIM [Suspect]
     Active Substance: PEGFILGRASTIM
     Dosage: 6 MG 1
     Route: 058
     Dates: start: 20190828, end: 20190828
  13. PEGFILGRASTIM [Suspect]
     Active Substance: PEGFILGRASTIM
     Dosage: 6 MG 1
     Route: 058
     Dates: start: 20191009, end: 20191009
  14. DOCETAXEL. [Concomitant]
     Active Substance: DOCETAXEL
     Indication: BREAST CANCER
     Dosage: 121.4 MILLIGRAM, QD (SINGLE)
     Route: 065
     Dates: start: 20191008, end: 20191008
  15. DOXORUBICIN [Concomitant]
     Active Substance: DOXORUBICIN
     Dosage: 96.5 MILLIGRAM, QD (SINGLE)
     Route: 065
     Dates: start: 20190917, end: 20190917

REACTIONS (1)
  - Pyelonephritis acute [Recovered/Resolved]

NARRATIVE: CASE EVENT DATE: 20191126
